FAERS Safety Report 5032678-6 (Version None)
Quarter: 2006Q2

REPORT INFORMATION
  Report Type: 
  Country: None (occurrence: None)
  Receive Date: 20060515
  Receipt Date: 20060125
  Transmission Date: 20061013
  Serious: No
  Sender: FDA-Public Use
  Company Number: S06-USA-00322-01

PATIENT
  Age: 82 Year
  Sex: Female

DRUGS (9)
  1. NAMENDA [Suspect]
     Indication: DEMENTIA
     Dosage: 5 MG QD PO
     Route: 047
     Dates: start: 20060121
  2. ARICEPT (DONPEZIL HYDROCHLORIDE) [Concomitant]
  3. SOTALOL HCL [Concomitant]
  4. ALTACE [Concomitant]
  5. COUMADIN [Concomitant]
  6. LAXIS (FUROSEMIDE) [Concomitant]
  7. PROTONIX [Concomitant]
  8. LEVOTHYROXINE SODIUM [Concomitant]
  9. MULTI-VITAMIN [Concomitant]

REACTIONS (1)
  - INSOMNIA [None]
